FAERS Safety Report 14880142 (Version 14)
Quarter: 2019Q2

REPORT INFORMATION
  Report Type: Report from Study
  Country: DE (occurrence: DE)
  Receive Date: 20180511
  Receipt Date: 20190520
  Transmission Date: 20190711
  Serious: Yes (Hospitalization, Other)
  Sender: FDA-Public Use
  Company Number: PHHY2018DE002483

PATIENT
  Age: 51 Year
  Sex: Female

DRUGS (4)
  1. KISQALI [Suspect]
     Active Substance: RIBOCICLIB
     Dosage: 600 MG, QD
     Route: 048
     Dates: start: 20180507, end: 20190120
  2. LETROZOLE. [Suspect]
     Active Substance: LETROZOLE
     Indication: BREAST CANCER METASTATIC
     Dosage: 2.5 MG, QD
     Route: 048
     Dates: start: 20180416
  3. KISQALI [Suspect]
     Active Substance: RIBOCICLIB
     Indication: BREAST CANCER METASTATIC
     Dosage: 600 MG, QD
     Route: 048
     Dates: start: 20180416, end: 20180423
  4. KISQALI [Suspect]
     Active Substance: RIBOCICLIB
     Dosage: 600 MG, QD
     Route: 048
     Dates: start: 20190129, end: 20190225

REACTIONS (16)
  - Pyrexia [Recovered/Resolved]
  - Depression [Not Recovered/Not Resolved]
  - Arthritis [Recovering/Resolving]
  - Constipation [Recovered/Resolved]
  - Neutrophil count decreased [Recovered/Resolved]
  - Hypertensive crisis [Recovered/Resolved]
  - Erythema [Recovered/Resolved]
  - Urinary tract infection [Recovered/Resolved]
  - Arthralgia [Recovering/Resolving]
  - Neutropenia [Recovered/Resolved]
  - Neutropenia [Recovered/Resolved]
  - General physical health deterioration [Recovered/Resolved]
  - Spinal pain [Not Recovered/Not Resolved]
  - Neutropenia [Recovered/Resolved]
  - Laryngitis [Recovered/Resolved]
  - Meniscus injury [Recovering/Resolving]

NARRATIVE: CASE EVENT DATE: 20180425
